FAERS Safety Report 23600886 (Version 2)
Quarter: 2024Q2

REPORT INFORMATION
  Report Type: Report from Study
  Country: US (occurrence: US)
  Receive Date: 20240306
  Receipt Date: 20240607
  Transmission Date: 20240716
  Serious: Yes (Death, Other)
  Sender: FDA-Public Use
  Company Number: US-TAIHOP-2024-002097

PATIENT
  Age: 54 Year
  Sex: Female

DRUGS (1)
  1. LONSURF [Suspect]
     Active Substance: TIPIRACIL HYDROCHLORIDE\TRIFLURIDINE
     Indication: Colon cancer
     Dosage: CYCLE 1 STARTED ON 28/FEB/2024, CURRENT CYCLE UNKNOWN
     Route: 048
     Dates: start: 20240228

REACTIONS (5)
  - Death [Fatal]
  - Gastric ulcer [Unknown]
  - Insomnia [Unknown]
  - Swelling [Unknown]
  - Abdominal pain [Unknown]
